FAERS Safety Report 8922675 (Version 1)
Quarter: 2012Q4

REPORT INFORMATION
  Report Type: 
  Country: NO (occurrence: NO)
  Receive Date: 20121125
  Receipt Date: 20121125
  Transmission Date: 20130627
  Serious: Yes (Other)
  Sender: FDA-Public Use
  Company Number: NO-BAYER-2012-092456

PATIENT
  Age: 43 Year
  Sex: Female
  Weight: 88 kg

DRUGS (2)
  1. MIRENA [Suspect]
     Indication: CONTRACEPTION
     Dosage: 20 mcg/24hr, CONT
     Route: 015
     Dates: start: 2004, end: 20120831
  2. MIRENA [Suspect]
     Indication: GENITAL BLEEDING
     Dosage: 20 mcg/24hr, CONT
     Dates: start: 20121019, end: 20121019

REACTIONS (5)
  - Meniere^s disease [None]
  - Device misuse [None]
  - Procedural pain [None]
  - Procedural pain [None]
  - Device difficult to use [None]
